FAERS Safety Report 25425474 (Version 2)
Quarter: 2025Q3

REPORT INFORMATION
  Report Type: Spontaneous
  Country: US (occurrence: US)
  Receive Date: 20250611
  Receipt Date: 20250809
  Transmission Date: 20251020
  Serious: Yes (Other)
  Sender: ALEXION PHARMACEUTICALS
  Company Number: US-AstraZeneca-CH-00887329A

PATIENT
  Sex: Female

DRUGS (2)
  1. FASENRA [Suspect]
     Active Substance: BENRALIZUMAB
     Indication: Asthma
     Route: 065
  2. FASENRA [Suspect]
     Active Substance: BENRALIZUMAB

REACTIONS (9)
  - Product prescribing issue [Unknown]
  - Pulmonary function test decreased [Unknown]
  - Product dose omission issue [Unknown]
  - Urticaria [Unknown]
  - Dyspnoea [Unknown]
  - Sneezing [Unknown]
  - Wheezing [Unknown]
  - Pneumonia [Unknown]
  - Nasopharyngitis [Unknown]
